FAERS Safety Report 16172780 (Version 2)
Quarter: 2019Q2

REPORT INFORMATION
  Report Type: Spontaneous
  Country: PT (occurrence: PT)
  Receive Date: 20190409
  Receipt Date: 20190424
  Transmission Date: 20190711
  Serious: Yes (Hospitalization, Other)
  Sender: FDA-Public Use
  Company Number: PT-AUROBINDO-AUR-APL-2019-018334

PATIENT

DRUGS (6)
  1. PRIMIDONE. [Concomitant]
     Active Substance: PRIMIDONE
     Indication: PRODUCT USED FOR UNKNOWN INDICATION
     Dosage: 62.5 MILLIGRAM, 3 ID (ALTHOUGH SHE HAD EXUBERANT LREMORS),
     Route: 065
  2. TOPIRAMATE. [Suspect]
     Active Substance: TOPIRAMATE
     Indication: COGNITIVE DISORDER
     Dosage: UNK
     Route: 065
  3. FLUOXETINE [Concomitant]
     Active Substance: FLUOXETINE HYDROCHLORIDE
     Indication: PRODUCT USED FOR UNKNOWN INDICATION
     Dosage: 20 MILLIGRAM 1ID
     Route: 065
  4. TRAZODONE [Concomitant]
     Active Substance: TRAZODONE HYDROCHLORIDE
     Indication: PRODUCT USED FOR UNKNOWN INDICATION
     Dosage: 100 MILLIGRAM 1 ID
     Route: 065
  5. FLURAZEPAM [Concomitant]
     Active Substance: FLURAZEPAM\FLURAZEPAM HYDROCHLORIDE
     Indication: PRODUCT USED FOR UNKNOWN INDICATION
     Dosage: 15 MILLIGRAM1 ID
     Route: 065
  6. LEVOTHYROXINE. [Concomitant]
     Active Substance: LEVOTHYROXINE
     Indication: PRODUCT USED FOR UNKNOWN INDICATION
     Dosage: 0.05 MILLIGRAM 1 ID,
     Route: 065

REACTIONS (12)
  - Apathy [Recovered/Resolved]
  - Disability [Recovering/Resolving]
  - Off label use [Recovering/Resolving]
  - Cognitive disorder [Recovered/Resolved]
  - Mutism [Recovering/Resolving]
  - Restlessness [Recovering/Resolving]
  - Loss of personal independence in daily activities [Recovered/Resolved]
  - Scleroderma [Recovering/Resolving]
  - Sluggishness [Recovering/Resolving]
  - Impaired self-care [Recovered/Resolved]
  - Condition aggravated [Recovering/Resolving]
  - Disorientation [Recovering/Resolving]
